FAERS Safety Report 20760806 (Version 1)
Quarter: 2022Q2

REPORT INFORMATION
  Report Type: Spontaneous
  Country: US (occurrence: US)
  Receive Date: 20220428
  Receipt Date: 20220428
  Transmission Date: 20220721
  Serious: No
  Sender: FDA-Public Use
  Company Number: US-TEVA-2022-US-2024417

PATIENT

DRUGS (1)
  1. AIRDUO DIGIHALER [Suspect]
     Active Substance: FLUTICASONE PROPIONATE\SALMETEROL XINAFOATE
     Dosage: 232 MCG / 14 MCG
     Route: 065

REACTIONS (2)
  - Anxiety [Unknown]
  - Drug ineffective [Unknown]
